FAERS Safety Report 25218504 (Version 1)
Quarter: 2025Q2

REPORT INFORMATION
  Report Type: Spontaneous
  Country: US (occurrence: US)
  Receive Date: 20250421
  Receipt Date: 20250421
  Transmission Date: 20250716
  Serious: Yes (Hospitalization, Other)
  Sender: SANOFI AVENTIS
  Company Number: US-DialogSolutions-SAAVPROD-PI757709-C1

PATIENT
  Age: 50 Year
  Sex: Male

DRUGS (2)
  1. FABRAZYME [Suspect]
     Active Substance: AGALSIDASE BETA
  2. MYCOPHENOLATE MOFETIL [Concomitant]
     Active Substance: MYCOPHENOLATE MOFETIL
     Indication: Fabry^s disease

REACTIONS (6)
  - Intestinal pseudo-obstruction [Unknown]
  - Flatulence [Unknown]
  - Product dose omission issue [Unknown]
  - Constipation [Unknown]
  - Intestinal dilatation [Unknown]
  - Gastrointestinal oedema [Unknown]
